FAERS Safety Report 6599913-4 (Version None)
Quarter: 2010Q1

REPORT INFORMATION
  Report Type: 
  Country: None (occurrence: None)
  Receive Date: 20100217
  Receipt Date: 20100125
  Transmission Date: 20100710
  Serious: Yes (Hospitalization)
  Sender: FDA-Public Use
  Company Number: 1000011637

PATIENT
  Age: 90 Year
  Sex: Male

DRUGS (8)
  1. MEMANTINE HCL [Suspect]
     Dosage: 20 MG (20 MG, 1 IN 1 D), ORAL
     Route: 048
  2. DISULONE (40 MILLIGRAM, TABLETS) [Suspect]
     Indication: COELIAC DISEASE
     Dosage: 1 DOSAGE FROMS (1 DOSAGE FORMS, 1 IN 1 D), ORAL
     Route: 048
     Dates: start: 19940101, end: 20090801
  3. DISULONE (40 MILLIGRAM, TABLETS) [Suspect]
     Indication: HERPES DERMATITIS
     Dosage: 1 DOSAGE FROMS (1 DOSAGE FORMS, 1 IN 1 D), ORAL
     Route: 048
     Dates: start: 19940101, end: 20090801
  4. OGAST (30 MILLIGRAM, CAPSULES) [Suspect]
     Dosage: 1 DOSAGE FORMS (1 DOSAGE FORMS, 1 IN 1 D), ORAL
     Route: 048
  5. RISPERDAL [Suspect]
     Dosage: 1 DOSAGE FORMS (1 DOSAGE FORMS, 1 IN 1 D), ORAL
     Route: 048
  6. AMIODARONE HCL [Suspect]
     Dosage: 1 DOSAGE FORMS (1 DOSAGE FORMS, 1 IN 1 D), ORAL
     Route: 048
  7. FUROSEMIDE (40 MILLIGRAM, TABLETS) [Suspect]
     Dosage: 1 DOSAGE FORMS (1 DOSAGE FORMS, 1 IN 1 D), ORAL
     Route: 048
  8. TEMESTA [Concomitant]

REACTIONS (3)
  - ANAEMIA MACROCYTIC [None]
  - HAEMOLYTIC ANAEMIA [None]
  - RENAL IMPAIRMENT [None]
